FAERS Safety Report 16033453 (Version 1)
Quarter: 2019Q1

REPORT INFORMATION
  Report Type: Other
  Country: US (occurrence: US)
  Receive Date: 20190305
  Receipt Date: 20190305
  Transmission Date: 20190418
  Serious: Yes (Other)
  Sender: FDA-Public Use
  Company Number: US-PRINSTON PHARMACEUTICAL INC.-2018PRN01438

PATIENT
  Age: 71 Year
  Sex: Female
  Weight: 83.9 kg

DRUGS (7)
  1. DULOXETINE. [Suspect]
     Active Substance: DULOXETINE
     Indication: MAJOR DEPRESSION
     Dosage: 60 MG, 1X/DAY IN THE MORNING
     Route: 048
     Dates: start: 201806, end: 201806
  2. UNKNOWN BETA BLOCKER [Concomitant]
     Active Substance: UNSPECIFIED INGREDIENT
  3. DULOXETINE. [Suspect]
     Active Substance: DULOXETINE
     Indication: ARTHRITIS
     Dosage: 120 MG, 1X/DAY
     Route: 048
     Dates: start: 201806, end: 201808
  4. SIMVASTATIN. [Concomitant]
     Active Substance: SIMVASTATIN
  5. LOSARTAN/ HYDROCHLOROTHIAZIDE [Concomitant]
     Active Substance: HYDROCHLOROTHIAZIDE\LOSARTAN POTASSIUM
  6. AMLODIPINE [Concomitant]
     Active Substance: AMLODIPINE BESYLATE
  7. LORAZEPAM. [Concomitant]
     Active Substance: LORAZEPAM

REACTIONS (15)
  - Product substitution issue [Recovered/Resolved]
  - Feeling abnormal [Recovered/Resolved]
  - Somnolence [Recovered/Resolved]
  - Drug effect decreased [Recovered/Resolved]
  - Anger [Recovered/Resolved]
  - Apathy [Recovered/Resolved]
  - Suicidal ideation [Recovered/Resolved]
  - Depression [Recovered/Resolved]
  - Mood altered [Recovered/Resolved]
  - Malaise [Recovered/Resolved]
  - Psychiatric symptom [Not Recovered/Not Resolved]
  - Lethargy [Recovered/Resolved]
  - Confusional state [Recovered/Resolved]
  - Feeling of despair [Recovered/Resolved]
  - Sleep apnoea syndrome [Unknown]

NARRATIVE: CASE EVENT DATE: 201806
